FAERS Safety Report 14070136 (Version 3)
Quarter: 2017Q4

REPORT INFORMATION
  Report Type: Spontaneous
  Country: ES (occurrence: ES)
  Receive Date: 20171011
  Receipt Date: 20171122
  Transmission Date: 20180321
  Serious: Yes (Death, Other)
  Sender: FDA-Public Use
  Company Number: ES-CIPLA LTD.-2017ES17859

PATIENT

DRUGS (8)
  1. PACLITAXEL. [Suspect]
     Active Substance: PACLITAXEL
     Indication: ADENOCARCINOMA GASTRIC
     Dosage: 80 MG/M2, EVERY 7 DAYS (6 CYCLES)
     Route: 042
  2. IRINOTECAN [Suspect]
     Active Substance: IRINOTECAN
     Indication: ADENOCARCINOMA GASTRIC
     Dosage: 200 MG/M2, EVERY 21 CYCLES (24 CYCLES)
     Route: 042
  3. CAPECITABINE. [Suspect]
     Active Substance: CAPECITABINE
     Indication: ADENOCARCINOMA GASTRIC
     Dosage: 1000 MG/M2,  18 CYCLE (EVERY 12 H ON DAYS 1-14 WITHIN 21-DAY CYCLES)
     Route: 048
     Dates: start: 201106
  4. CARBOPLATIN. [Suspect]
     Active Substance: CARBOPLATIN
     Indication: ADENOCARCINOMA GASTRIC
     Dosage: AUC 5, EVERY 21 DAYS (6 CYCLES)
     Route: 042
  5. PACLITAXEL. [Suspect]
     Active Substance: PACLITAXEL
     Dosage: 175 MG/M2, EVERY 21 DAYS (7 CYCLES)
     Route: 042
  6. TRASTUZUMAB. [Concomitant]
     Active Substance: TRASTUZUMAB
     Dosage: 6 MG/KG (EVERY 21 DAYS 1 CYCLE)
     Route: 042
     Dates: start: 201106
  7. OXALIPLATIN. [Suspect]
     Active Substance: OXALIPLATIN
     Indication: ADENOCARCINOMA GASTRIC
     Dosage: 130 MG/M2 (EVERY 21 DAYS, RECEIVED TOTAL 11 CYCLES)
     Route: 042
  8. TRASTUZUMAB. [Concomitant]
     Active Substance: TRASTUZUMAB
     Indication: ADENOCARCINOMA GASTRIC
     Dosage: 8 MG/KG WEIGHT THE FIRST TIME, FIRST CYCLE
     Route: 065

REACTIONS (7)
  - Disease progression [Unknown]
  - Adenocarcinoma gastric [Unknown]
  - Toxicity to various agents [Unknown]
  - Respiratory tract infection [Fatal]
  - Creatinine renal clearance decreased [Unknown]
  - Asthenia [Unknown]
  - Neuropathy peripheral [Unknown]

NARRATIVE: CASE EVENT DATE: 201611
